FAERS Safety Report 22946761 (Version 4)
Quarter: 2024Q1

REPORT INFORMATION
  Report Type: Report from Study
  Country: US (occurrence: US)
  Receive Date: 20230915
  Receipt Date: 20240115
  Transmission Date: 20240409
  Serious: No
  Sender: FDA-Public Use
  Company Number: US-002147023-NVSC2023US199797

PATIENT
  Age: 81 Year
  Sex: Male

DRUGS (1)
  1. ENTRESTO [Suspect]
     Active Substance: SACUBITRIL\VALSARTAN
     Indication: Product used for unknown indication
     Dosage: 1.5 DOSAGE FORM, BID (1/2 AM AND 1 PM)
     Route: 065

REACTIONS (8)
  - Blood sodium decreased [Unknown]
  - Wrong technique in product usage process [Unknown]
  - Underdose [Unknown]
  - Gait disturbance [Unknown]
  - Arthralgia [Unknown]
  - Accident [Unknown]
  - Orthostatic hypotension [Unknown]
  - Dyspnoea [Unknown]

NARRATIVE: CASE EVENT DATE: 20231111
